FAERS Safety Report 18007969 (Version 3)
Quarter: 2020Q3

REPORT INFORMATION
  Report Type: Spontaneous
  Country: US (occurrence: US)
  Receive Date: 20200710
  Receipt Date: 20200831
  Transmission Date: 20201103
  Serious: No
  Sender: FDA-Public Use
  Company Number: US-AMGEN-USASP2020110125

PATIENT
  Age: 71 Year
  Sex: Female
  Weight: 66.21 kg

DRUGS (4)
  1. LEXAPRO [Concomitant]
     Active Substance: ESCITALOPRAM OXALATE
     Dosage: 10 MILLIGRAM, QD
     Route: 048
  2. PROLIA [Suspect]
     Active Substance: DENOSUMAB
     Indication: OSTEOPOROTIC FRACTURE
     Dosage: UNK
     Route: 065
     Dates: start: 20190729
  3. LIPITOR [Concomitant]
     Active Substance: ATORVASTATIN CALCIUM
     Indication: BLOOD CHOLESTEROL ABNORMAL
     Dosage: 20 MILLIGRAM, NIGHTLY
     Route: 048
  4. FORTEO [Concomitant]
     Active Substance: TERIPARATIDE

REACTIONS (4)
  - Weight increased [Unknown]
  - Glomerular filtration rate decreased [Unknown]
  - Fat tissue increased [Unknown]
  - Anion gap decreased [Unknown]

NARRATIVE: CASE EVENT DATE: 20200525
